FAERS Safety Report 5781256 (Version 2)
Quarter: 2013Q3

REPORT INFORMATION
  Report Type: Spontaneous
  Country: ES (occurrence: ES)
  Receive Date: 20050425
  Receipt Date: 20130715
  Transmission Date: 20140515
  Serious: Yes (Hospitalization)
  Sender: FDA-Public Use
  Company Number: ES-JNJFOC-20050403537

PATIENT
  Age: 21 Year
  Sex: Male

DRUGS (1)
  1. INFLIXIMAB [Suspect]
     Indication: CROHN^S DISEASE
     Route: 042
     Dates: start: 200105, end: 200106

REACTIONS (3)
  - Paradoxical drug reaction [Recovered/Resolved]
  - Tuberculosis [Recovered/Resolved]
  - Immune reconstitution inflammatory syndrome [Unknown]
